FAERS Safety Report 7064396-7 (Version None)
Quarter: 2010Q4

REPORT INFORMATION
  Report Type: 
  Country: None (occurrence: None)
  Receive Date: 20101027
  Receipt Date: 20101013
  Transmission Date: 20110411
  Serious: Yes (Hospitalization)
  Sender: FDA-Public Use
  Company Number: PHHY2010IT69510

PATIENT
  Sex: Female

DRUGS (4)
  1. LEPONEX [Suspect]
     Indication: SCHIZOPHRENIA
     Dosage: UNK
     Route: 048
     Dates: start: 20080101, end: 20100620
  2. HALDOL [Suspect]
     Indication: SCHIZOPHRENIA
     Dosage: UNK
     Route: 048
     Dates: start: 19960101, end: 20100623
  3. TACHIPIRINA [Suspect]
     Indication: HYPERPYREXIA
     Dosage: 1000 MG
     Route: 048
     Dates: start: 20100610, end: 20100623
  4. DELORAZEPAM [Concomitant]
     Dosage: 20 DROPS
     Route: 048

REACTIONS (6)
  - ASTHENIA [None]
  - HYPERPYREXIA [None]
  - IATROGENIC INJURY [None]
  - MYELODYSPLASTIC SYNDROME [None]
  - NEUTROPHIL COUNT DECREASED [None]
  - WHITE BLOOD CELL COUNT DECREASED [None]
